FAERS Safety Report 16980935 (Version 1)
Quarter: 2019Q4

REPORT INFORMATION
  Report Type: Spontaneous
  Country: TH (occurrence: TH)
  Receive Date: 20191031
  Receipt Date: 20191031
  Transmission Date: 20200122
  Serious: Yes (Other)
  Sender: FDA-Public Use
  Company Number: TH-ALLERGAN-1943904US

PATIENT
  Sex: Female
  Weight: 46.5 kg

DRUGS (8)
  1. VITAMIN C ASC ACID [Concomitant]
     Dosage: 20 ?G
     Route: 058
  2. NAT B [Concomitant]
     Indication: PRODUCT USED FOR UNKNOWN INDICATION
     Route: 048
  3. MEMANTINE HCL - BP [Suspect]
     Active Substance: MEMANTINE
     Indication: FRONTOTEMPORAL DEMENTIA
     Dosage: 5 MG, QD, (5 MG, 1 D)
     Route: 048
  4. VITAMIN C ASC ACID [Concomitant]
     Indication: PRODUCT USED FOR UNKNOWN INDICATION
     Dosage: 1000 MG, QD, 1IN 1 D
     Route: 048
  5. FORTEO [Concomitant]
     Active Substance: TERIPARATIDE
     Indication: PRODUCT USED FOR UNKNOWN INDICATION
     Dosage: 20 ?G, QD, 1 IN 1 D
     Route: 058
  6. SEROQUEL [Concomitant]
     Active Substance: QUETIAPINE FUMARATE
     Indication: PRODUCT USED FOR UNKNOWN INDICATION
     Dosage: 25 MG, QD, 1 IN 1 D
     Route: 048
  7. MEMANTINE HCL - BP [Suspect]
     Active Substance: MEMANTINE
     Indication: DEMENTIA ALZHEIMER^S TYPE
     Dosage: 20 MG, QD, (10 MG , 2 IN 1 D)
     Dates: start: 20170311
  8. CDR FORTOS [Concomitant]
     Indication: PRODUCT USED FOR UNKNOWN INDICATION
     Dosage: 1 DOSAGE FORMS,2 IN 1 D

REACTIONS (7)
  - Fall [Unknown]
  - Knee deformity [Unknown]
  - Gait disturbance [Unknown]
  - Peripheral swelling [Unknown]
  - Deep vein thrombosis [Not Recovered/Not Resolved]
  - Muscular weakness [Unknown]
  - Dysstasia [Unknown]

NARRATIVE: CASE EVENT DATE: 20180626
